FAERS Safety Report 9103597 (Version 4)
Quarter: 2013Q2

REPORT INFORMATION
  Report Type: Report from Study
  Country: DE (occurrence: DE)
  Receive Date: 20130218
  Receipt Date: 20130410
  Transmission Date: 20140414
  Serious: Yes (Hospitalization)
  Sender: FDA-Public Use
  Company Number: DE-GLAXOSMITHKLINE-B0868459A

PATIENT
  Age: 62 Year
  Sex: Female
  Weight: 71 kg

DRUGS (8)
  1. LAPATINIB [Suspect]
     Indication: BREAST NEOPLASM
     Dosage: 500MG PER DAY
     Route: 048
     Dates: start: 20121127
  2. PACLITAXEL [Suspect]
     Indication: BREAST NEOPLASM
     Dosage: 60MGM2 WEEKLY
     Route: 042
     Dates: start: 20121127
  3. MYOCET [Suspect]
     Indication: BREAST NEOPLASM
     Dosage: 15MGM2 WEEKLY
     Route: 042
     Dates: start: 20121127
  4. CARBOPLATIN [Suspect]
     Indication: BREAST NEOPLASM
     Route: 042
     Dates: start: 20121127
  5. TRASTUZUMAB [Suspect]
     Indication: BREAST NEOPLASM
     Dosage: 6MGK EVERY 3 WEEKS
     Route: 042
     Dates: start: 20121127
  6. CLEXANE [Concomitant]
     Dosage: .6ML TWICE PER DAY
     Dates: start: 20130129, end: 20130201
  7. PHENPROCOUMON [Concomitant]
     Dosage: 6MG PER DAY
     Dates: start: 20130202
  8. EPOETIN [Concomitant]
     Dosage: 30000IU PER DAY
     Dates: start: 20130201, end: 20130201

REACTIONS (1)
  - Pulmonary embolism [Recovered/Resolved]
